FAERS Safety Report 13419346 (Version 6)
Quarter: 2017Q4

REPORT INFORMATION
  Report Type: Report from Study
  Country: US (occurrence: US)
  Receive Date: 20170407
  Receipt Date: 20171120
  Transmission Date: 20180320
  Serious: Yes (Other)
  Sender: FDA-Public Use
  Company Number: US-GILEAD-2017-0263485

PATIENT
  Age: 71 Year
  Sex: Female

DRUGS (2)
  1. AMBRISENTAN [Suspect]
     Active Substance: AMBRISENTAN
     Dosage: 5 MG, UNK
     Route: 065
  2. AMBRISENTAN [Suspect]
     Active Substance: AMBRISENTAN
     Indication: PULMONARY ARTERIAL HYPERTENSION
     Dosage: 10 MG, QD
     Route: 065
     Dates: start: 20170324

REACTIONS (12)
  - Oedema [Not Recovered/Not Resolved]
  - Nausea [Unknown]
  - Cough [Unknown]
  - Leukaemia [Unknown]
  - Fluid retention [Not Recovered/Not Resolved]
  - Renal disorder [Not Recovered/Not Resolved]
  - Abdominal discomfort [Unknown]
  - Bladder cancer [Unknown]
  - Peripheral swelling [Unknown]
  - Headache [Recovered/Resolved]
  - Diarrhoea [Unknown]
  - Nausea [Recovered/Resolved]
